FAERS Safety Report 8068290-4 (Version None)
Quarter: 2012Q1

REPORT INFORMATION
  Report Type: 
  Country: None (occurrence: None)
  Receive Date: 20120124
  Receipt Date: 20111006
  Transmission Date: 20120608
  Serious: No
  Sender: FDA-Public Use
  Company Number: US-AMGEN-USASP2011051639

PATIENT
  Age: 76 Year
  Sex: Female

DRUGS (9)
  1. CELEBREX [Concomitant]
  2. PREDNISONE [Concomitant]
     Dates: start: 20110101, end: 20110101
  3. PROLIA [Suspect]
     Indication: OSTEOPOROSIS POSTMENOPAUSAL
     Dosage: 60 MG, Q6MO
     Dates: start: 20110401
  4. ONE A DAY [Concomitant]
     Dosage: UNK
  5. VIMOVO [Concomitant]
     Dates: end: 20110101
  6. VITAMIN D [Concomitant]
  7. ASCORBIC ACID [Concomitant]
     Dosage: UNK
  8. CALCIUM PLUS VITAMIN D [Concomitant]
  9. SYNTHROID [Concomitant]
     Dosage: UNK

REACTIONS (2)
  - PHOTOSENSITIVITY REACTION [None]
  - BLISTER [None]
